FAERS Safety Report 15851576 (Version 1)
Quarter: 2019Q1

REPORT INFORMATION
  Report Type: Spontaneous
  Country: IS (occurrence: IS)
  Receive Date: 20190122
  Receipt Date: 20190122
  Transmission Date: 20190417
  Serious: Yes (Other)
  Sender: FDA-Public Use
  Company Number: IS-TEVA-2019-IS-1002301

PATIENT
  Age: 44 Year
  Sex: Female

DRUGS (2)
  1. DULOXETINE. [Suspect]
     Active Substance: DULOXETINE
     Dosage: 60 MILLIGRAM DAILY; 60 MG PER DAY AND SOME DAYS WERE 30 MG ADDED
     Route: 065
  2. LEVAXIN 0,05 MG T?FLUR [Interacting]
     Active Substance: LEVOTHYROXINE SODIUM
     Indication: HYPOTHYROIDISM
     Dosage: 4 TABLETS A WEEK
     Dates: start: 20180426

REACTIONS (4)
  - Serotonin syndrome [Not Recovered/Not Resolved]
  - Restlessness [Not Recovered/Not Resolved]
  - Drug interaction [Unknown]
  - Tremor [Not Recovered/Not Resolved]
